FAERS Safety Report 9344049 (Version 3)
Quarter: 2016Q1

REPORT INFORMATION
  Report Type: Spontaneous
  Country: JP (occurrence: JP)
  Receive Date: 20130612
  Receipt Date: 20160120
  Transmission Date: 20160526
  Serious: Yes (Life-Threatening, Hospitalization)
  Sender: FDA-Public Use
  Company Number: JP-BRISTOL-MYERS SQUIBB COMPANY-18995076

PATIENT
  Age: 83 Year
  Sex: Male
  Weight: 46 kg

DRUGS (2)
  1. ERBITUX [Suspect]
     Active Substance: CETUXIMAB
     Indication: LARYNGEAL CANCER
     Dosage: 400 MG/M2, QWK
     Route: 041
     Dates: start: 20130419, end: 20130419
  2. ERBITUX [Suspect]
     Active Substance: CETUXIMAB
     Dosage: 250 MG/M2, QWK
     Route: 041
     Dates: end: 20130514

REACTIONS (5)
  - Diarrhoea [Unknown]
  - Mucosal inflammation [Unknown]
  - Prerenal failure [Unknown]
  - Dehydration [Unknown]
  - Rectal ulcer haemorrhage [Recovering/Resolving]

NARRATIVE: CASE EVENT DATE: 20130523
